FAERS Safety Report 9617970 (Version 2)
Quarter: 2013Q4

REPORT INFORMATION
  Report Type: Spontaneous
  Country: GB (occurrence: GB)
  Receive Date: 20131011
  Receipt Date: 20131011
  Transmission Date: 20140711
  Serious: Yes (Other)
  Sender: FDA-Public Use
  Company Number: GB-ACTAVIS-2013-03930

PATIENT
  Age: 78 Year
  Sex: Female

DRUGS (7)
  1. CLOPIDOGREL (UNKNOWN) [Suspect]
     Indication: CEREBROVASCULAR ACCIDENT
     Dosage: 75MG
     Route: 048
     Dates: start: 201201
  2. ZOMETA [Suspect]
     Indication: PRODUCT USED FOR UNKNOWN INDICATION
     Dosage: 1 DF TWICE A YEAR
     Route: 042
     Dates: start: 20121207
  3. ADCAL D3 [Concomitant]
     Indication: OSTEOPOROSIS
     Dosage: 2 DF, DAILY
     Route: 065
  4. ALENDRONIC ACID [Concomitant]
     Indication: OSTEOPOROSIS
     Dosage: 70MG
     Route: 065
  5. SIMVASTATIN [Concomitant]
     Indication: HYPERCHOLESTEROLAEMIA
     Dosage: 40MG
     Route: 065
  6. ANASTROZOLE [Concomitant]
     Indication: BREAST CANCER
     Dosage: 7MG
     Route: 065
  7. FELODIPINE [Concomitant]
     Indication: HYPERTENSION
     Dosage: 25MG
     Route: 065

REACTIONS (3)
  - Drug interaction [Unknown]
  - Drug ineffective [Unknown]
  - Contusion [Recovered/Resolved]
